FAERS Safety Report 9640521 (Version 1)
Quarter: 2013Q4

REPORT INFORMATION
  Report Type: Report from Study
  Country: US (occurrence: US)
  Receive Date: 20131023
  Receipt Date: 20131023
  Transmission Date: 20140711
  Serious: No
  Sender: FDA-Public Use
  Company Number: US-ABBVIE-13P-163-1062350-00

PATIENT
  Sex: Female
  Weight: 87.62 kg

DRUGS (18)
  1. LUPRON DEPOT [Suspect]
     Indication: ENDOMETRIOSIS
     Dosage: MONTHLY
     Route: 030
     Dates: start: 20121031
  2. LUPRON DEPOT [Suspect]
     Indication: UTERINE ENLARGEMENT
  3. LUPRON DEPOT [Suspect]
     Indication: HYPERTRICHOSIS
  4. LEVOTHYROXINE [Concomitant]
     Indication: HYPOTHYROIDISM
     Route: 048
  5. LOSARTAN/HCTZ [Concomitant]
     Indication: HYPERTENSION
     Dosage: 100/12.5MG DAILY
     Route: 048
  6. SYMBICORT ER [Concomitant]
     Indication: PRODUCT USED FOR UNKNOWN INDICATION
     Dosage: 100/20MG DAILY
  7. GLYBURIDE/METFORMIN [Concomitant]
     Indication: DIABETES MELLITUS
     Dosage: 2.5/500MG DAILY
     Route: 048
  8. OMEPRAZOLE DR [Concomitant]
     Indication: GASTROOESOPHAGEAL REFLUX DISEASE
     Route: 048
  9. LANTUS [Concomitant]
     Indication: PRODUCT USED FOR UNKNOWN INDICATION
     Dosage: AT BEDTIME
     Route: 058
  10. NOVOLOG [Concomitant]
     Indication: PRODUCT USED FOR UNKNOWN INDICATION
     Dosage: AT DINNER
     Route: 058
  11. OXYCODONE [Concomitant]
     Indication: PAIN
     Dosage: 5/325MG, AS NEEDED
     Route: 048
  12. ASA [Concomitant]
     Indication: PRODUCT USED FOR UNKNOWN INDICATION
     Route: 048
  13. CALTRATE SOFT CHEWS WITH VITAMIN D [Concomitant]
     Indication: PRODUCT USED FOR UNKNOWN INDICATION
     Dosage: 1200MG/800IU, 2 SOFT CHEWS DAILY
     Route: 048
  14. STOOL SOFTENERS [Concomitant]
     Indication: PRODUCT USED FOR UNKNOWN INDICATION
     Route: 048
  15. DULCOLAX [Concomitant]
     Indication: PRODUCT USED FOR UNKNOWN INDICATION
     Dosage: TWICE DAILY
  16. FISH OIL [Concomitant]
     Indication: PRODUCT USED FOR UNKNOWN INDICATION
     Route: 048
  17. MULTIVITAMINS [Concomitant]
     Indication: PRODUCT USED FOR UNKNOWN INDICATION
     Route: 048
  18. BETAMETHASONE/VALERATE CREAM 0.1% [Concomitant]
     Indication: PRURITUS

REACTIONS (1)
  - Hypotrichosis [Unknown]
